FAERS Safety Report 8051625-6 (Version None)
Quarter: 2012Q1

REPORT INFORMATION
  Report Type: 
  Country: None (occurrence: None)
  Receive Date: 20120118
  Receipt Date: 20120111
  Transmission Date: 20120608
  Serious: Yes (Hospitalization)
  Sender: FDA-Public Use
  Company Number: US-BIOGENIDEC-2012BI001498

PATIENT
  Age: 50 Year
  Sex: Female

DRUGS (2)
  1. AVONEX [Suspect]
     Indication: MULTIPLE SCLEROSIS
     Route: 030
     Dates: start: 20070701, end: 20090201
  2. AVONEX [Suspect]
     Route: 030
     Dates: start: 20100201

REACTIONS (2)
  - MULTIPLE SCLEROSIS RELAPSE [None]
  - FOOD POISONING [None]
